FAERS Safety Report 4564002-7 (Version None)
Quarter: 2005Q1

REPORT INFORMATION
  Report Type: 
  Country: None (occurrence: None)
  Receive Date: 20050125
  Receipt Date: 20050110
  Transmission Date: 20050727
  Serious: Yes (Hospitalization)
  Sender: FDA-Public Use
  Company Number: THYM-10349

PATIENT
  Age: 38 Year
  Sex: Female
  Weight: 97 kg

DRUGS (29)
  1. THYMOGLOBULIN [Suspect]
     Indication: KIDNEY TRANSPLANT REJECTION
     Dosage: 150 MG QD IV
     Route: 042
     Dates: start: 20040930, end: 20041002
  2. THYMOGLOBULIN [Suspect]
     Indication: KIDNEY TRANSPLANT REJECTION
     Dosage: 75 MG QD IV
     Route: 042
     Dates: start: 20041003, end: 20041011
  3. SIMULECT [Concomitant]
  4. CELLCEPT [Concomitant]
  5. PROGRAF [Concomitant]
  6. HYDROMORPHINE [Concomitant]
  7. PROTONIX [Concomitant]
  8. PHOSLO [Concomitant]
  9. PREDNISONE [Concomitant]
  10. PROMETHAZINE [Concomitant]
  11. DIPHENHYDRAMINE HCL [Concomitant]
  12. SODIUM BICARBONATE [Concomitant]
  13. NORCO [Concomitant]
  14. AMBIEN [Concomitant]
  15. FENTANYL [Concomitant]
  16. DILAUDID [Concomitant]
  17. PLAVIX [Concomitant]
  18. MS CONTIN [Concomitant]
  19. ANCEF [Concomitant]
  20. DOCUATE SODIUM [Concomitant]
  21. SERTRALINE HCL [Concomitant]
  22. HYDROCODONE [Concomitant]
  23. METHYLPREDNISOLONE [Concomitant]
  24. MIRALAX [Concomitant]
  25. LEVAQUIN [Concomitant]
  26. VALCYTE [Concomitant]
  27. CIPROFLOXACIN HCL [Concomitant]
  28. ARANESP [Concomitant]
  29. ACETEMINOPHEN [Concomitant]

REACTIONS (11)
  - ANAEMIA [None]
  - BONE PAIN [None]
  - DISCOMFORT [None]
  - KIDNEY TRANSPLANT REJECTION [None]
  - LYMPH NODE PAIN [None]
  - LYMPHADENOPATHY [None]
  - PAIN [None]
  - PYREXIA [None]
  - RASH PRURITIC [None]
  - SERUM SICKNESS [None]
  - THROMBOCYTOPENIA [None]
